FAERS Safety Report 22012514 (Version 1)
Quarter: 2023Q1

REPORT INFORMATION
  Report Type: Spontaneous
  Country: None (occurrence: FR)
  Receive Date: 20230220
  Receipt Date: 20230220
  Transmission Date: 20230417
  Serious: Yes (Other)
  Sender: FDA-Public Use
  Company Number: FR-B.Braun Medical Inc.-2138192

PATIENT
  Age: 28 Year
  Sex: Female

DRUGS (3)
  1. ACETAMINOPHEN [Suspect]
     Active Substance: ACETAMINOPHEN
  2. MIRTAZAPINE [Suspect]
     Active Substance: MIRTAZAPINE
  3. TRAMADOL [Suspect]
     Active Substance: TRAMADOL

REACTIONS (1)
  - Drug use disorder [Unknown]
